FAERS Safety Report 19306562 (Version 1)
Quarter: 2021Q2

REPORT INFORMATION
  Report Type: Spontaneous
  Country: US (occurrence: US)
  Receive Date: 20210525
  Receipt Date: 20210525
  Transmission Date: 20210717
  Serious: Yes (Hospitalization, Disabling, Other)
  Sender: FDA-Public Use
  Company Number: None

PATIENT
  Age: 29 Year
  Sex: Female
  Weight: 54 kg

DRUGS (1)
  1. GADOLINIUM [Suspect]
     Active Substance: GADOLINIUM

REACTIONS (7)
  - Impaired work ability [None]
  - Illness [None]
  - Speech disorder [None]
  - Cognitive disorder [None]
  - Feeling abnormal [None]
  - Dementia [None]
  - Memory impairment [None]

NARRATIVE: CASE EVENT DATE: 20200429
